FAERS Safety Report 25413055 (Version 1)
Quarter: 2025Q2

REPORT INFORMATION
  Report Type: Report from Study
  Country: IT (occurrence: IT)
  Receive Date: 20250609
  Receipt Date: 20250609
  Transmission Date: 20250716
  Serious: Yes (Death, Hospitalization)
  Sender: NOVARTIS
  Company Number: IT-002147023-NVSC2025IT087566

PATIENT
  Age: 64 Year
  Sex: Female
  Weight: 56 kg

DRUGS (4)
  1. TAFINLAR [Suspect]
     Active Substance: DABRAFENIB MESYLATE
     Indication: Thyroid cancer
     Route: 048
     Dates: start: 20220930, end: 20241122
  2. MEKINIST [Suspect]
     Active Substance: TRAMETINIB DIMETHYL SULFOXIDE
     Indication: Thyroid cancer
     Route: 048
     Dates: start: 20220930, end: 20241122
  3. EDOXABAN [Concomitant]
     Active Substance: EDOXABAN
     Indication: Product used for unknown indication
     Route: 065
  4. ENOXAPARIN SODIUM [Concomitant]
     Active Substance: ENOXAPARIN SODIUM
     Indication: Product used for unknown indication
     Route: 065

REACTIONS (5)
  - Dyspnoea [Fatal]
  - Thyroid cancer [Fatal]
  - Malignant neoplasm progression [Fatal]
  - Pulmonary embolism [Recovered/Resolved]
  - Cardiogenic shock [Unknown]

NARRATIVE: CASE EVENT DATE: 20241122
